FAERS Safety Report 24028173 (Version 1)
Quarter: 2024Q2

REPORT INFORMATION
  Report Type: Report from Study
  Country: US (occurrence: US)
  Receive Date: 20240628
  Receipt Date: 20240628
  Transmission Date: 20240715
  Serious: Yes (Hospitalization, Other)
  Sender: FDA-Public Use
  Company Number: US-002147023-NVSC2021US060454

PATIENT
  Age: 60 Year
  Sex: Female
  Weight: 68.027 kg

DRUGS (10)
  1. CEFEPIME [Suspect]
     Active Substance: CEFEPIME HYDROCHLORIDE
     Indication: Product used for unknown indication
     Dosage: UNK
     Route: 065
  2. TREPROSTINIL [Suspect]
     Active Substance: TREPROSTINIL
     Dosage: 100 NG/KG/MIN, CONT
     Route: 042
     Dates: start: 20200622
  3. TREPROSTINIL [Suspect]
     Active Substance: TREPROSTINIL
     Indication: Pulmonary arterial hypertension
     Dosage: 80 NG/KG/MIN, CONT
     Route: 042
     Dates: start: 20200622
  4. TREPROSTINIL [Suspect]
     Active Substance: TREPROSTINIL
     Dosage: 100 NG/KG/MIN, CONT,2.5MG/M
     Route: 042
  5. TREPROSTINIL [Suspect]
     Active Substance: TREPROSTINIL
     Dosage: 100 NG/KG/MIN, CONT
     Route: 042
  6. TREPROSTINIL [Suspect]
     Active Substance: TREPROSTINIL
     Dosage: 100 NG/KG/MIN, CONT
     Route: 042
  7. TREPROSTINIL [Suspect]
     Active Substance: TREPROSTINIL
     Dosage: 100 NG/KG/MIN, CONT
     Route: 042
  8. OPSUMIT [Concomitant]
     Active Substance: MACITENTAN
     Indication: Product used for unknown indication
     Dosage: UNK
     Route: 065
  9. SILDENAFIL CITRATE [Concomitant]
     Active Substance: SILDENAFIL CITRATE
     Indication: Product used for unknown indication
     Dosage: UNK
     Route: 065
  10. TREPROSTINIL [Concomitant]
     Active Substance: TREPROSTINIL
     Indication: Product used for unknown indication
     Route: 065

REACTIONS (17)
  - Acute kidney injury [Unknown]
  - Pneumonia [Unknown]
  - Seizure [Unknown]
  - Syncope [Unknown]
  - Adverse drug reaction [Unknown]
  - Fall [Unknown]
  - Hypotension [Unknown]
  - Full blood count decreased [Unknown]
  - Haematological infection [Unknown]
  - Renal failure [Unknown]
  - Device related infection [Unknown]
  - COVID-19 [Unknown]
  - Wound [Unknown]
  - Injury [Unknown]
  - Diarrhoea [Unknown]
  - Fatigue [Unknown]
  - Dyspnoea [Unknown]

NARRATIVE: CASE EVENT DATE: 20210710
